FAERS Safety Report 4853056-6 (Version None)
Quarter: 2005Q4

REPORT INFORMATION
  Report Type: 
  Country: None (occurrence: None)
  Receive Date: 20051214
  Receipt Date: 20051205
  Transmission Date: 20060501
  Serious: Yes (Hospitalization)
  Sender: FDA-Public Use
  Company Number: FR-AVENTIS-200514037FR

PATIENT
  Age: 78 Year
  Sex: Male
  Weight: 49 kg

DRUGS (6)
  1. LASIX [Suspect]
     Indication: DRUG USE FOR UNKNOWN INDICATION
     Route: 048
     Dates: end: 20040527
  2. ALDACTONE [Suspect]
     Indication: CARDIAC FAILURE
     Route: 048
  3. COVERSYL [Suspect]
     Indication: CARDIAC FAILURE
     Route: 048
  4. KALEORID [Concomitant]
     Route: 048
  5. NITRODERM [Concomitant]
     Route: 062
  6. DIGOXIN [Concomitant]
     Route: 048

REACTIONS (3)
  - DEHYDRATION [None]
  - GASTROENTERITIS [None]
  - RENAL FAILURE ACUTE [None]
